FAERS Safety Report 6434006-8 (Version None)
Quarter: 2009Q4

REPORT INFORMATION
  Report Type: 
  Country: None (occurrence: None)
  Receive Date: 20091109
  Receipt Date: 20091109
  Transmission Date: 20100525
  Serious: Yes (Other)
  Sender: FDA-Public Use
  Company Number: None

PATIENT
  Sex: Female
  Weight: 60.782 kg

DRUGS (1)
  1. SIMVASTATIN (NO LABEL) [Suspect]
     Dosage: 1 PER DAY
     Dates: start: 20090810, end: 20090908

REACTIONS (2)
  - ASTHENIA [None]
  - DYSPNOEA [None]
